FAERS Safety Report 5729171-1 (Version None)
Quarter: 2008Q2

REPORT INFORMATION
  Report Type: 
  Country: None (occurrence: None)
  Receive Date: 20080506
  Receipt Date: 20080425
  Transmission Date: 20081010
  Serious: Yes (Death, Other)
  Sender: FDA-Public Use
  Company Number: US-PFIZER INC-2007001925

PATIENT
  Sex: Male

DRUGS (2)
  1. BEXTRA [Suspect]
     Indication: ARTHRITIS
     Dosage: TEXT:10 MILLIGRAM AND 20 MILLIGRAM
     Route: 048
     Dates: start: 20030502, end: 20041001
  2. BEXTRA [Suspect]
     Indication: PAIN

REACTIONS (2)
  - STEVENS-JOHNSON SYNDROME [None]
  - SUDDEN DEATH [None]
